FAERS Safety Report 8591662-6 (Version None)
Quarter: 2012Q3

REPORT INFORMATION
  Report Type: 
  Country: None (occurrence: None)
  Receive Date: 20120814
  Receipt Date: 20120806
  Transmission Date: 20120928
  Serious: Yes (Other)
  Sender: FDA-Public Use
  Company Number: US-ABBOTT-12P-163-0958621-00

PATIENT
  Sex: Female
  Weight: 59.02 kg

DRUGS (13)
  1. FISH OIL [Concomitant]
     Indication: SUPPLEMENTATION THERAPY
  2. VITAMIN B-12 [Concomitant]
     Indication: PRODUCT USED FOR UNKNOWN INDICATION
     Route: 060
  3. EYE VITAMINS [Concomitant]
     Indication: PRODUCT USED FOR UNKNOWN INDICATION
  4. ESTRADIOL [Concomitant]
     Indication: HORMONE REPLACEMENT THERAPY
  5. PRESAVISION [Concomitant]
     Indication: VITAMIN SUPPLEMENTATION
  6. PURINETHOL [Concomitant]
     Indication: PRODUCT USED FOR UNKNOWN INDICATION
  7. HUMIRA [Suspect]
     Indication: CROHN'S DISEASE
     Dates: start: 20090101
  8. DILTIAZEM [Concomitant]
     Indication: HYPERTENSION
  9. AZATHIOPRINE SODIUM [Concomitant]
     Indication: CROHN'S DISEASE
  10. CHONDROITIN W/GLUCOSAMINE [Concomitant]
     Indication: PRODUCT USED FOR UNKNOWN INDICATION
  11. PRESAVISION [Concomitant]
     Indication: MACULAR DEGENERATION
  12. SLOW RELEASE IRON [Concomitant]
     Indication: MINERAL SUPPLEMENTATION
  13. VITAMIN D [Concomitant]
     Indication: VITAMIN SUPPLEMENTATION

REACTIONS (12)
  - SKIN DISORDER [None]
  - SQUAMOUS CELL CARCINOMA [None]
  - PAIN IN EXTREMITY [None]
  - SQUAMOUS CELL CARCINOMA OF SKIN [None]
  - PAIN [None]
  - HYPERTENSION [None]
  - INJECTION SITE HAEMORRHAGE [None]
  - PYREXIA [None]
  - ARTHRALGIA [None]
  - BLOOD BLISTER [None]
  - CHILLS [None]
  - ABDOMINAL PAIN [None]
